FAERS Safety Report 9001683 (Version 1)
Quarter: 2013Q1

REPORT INFORMATION
  Report Type: Spontaneous
  Country: US (occurrence: US)
  Receive Date: 20130107
  Receipt Date: 20130107
  Transmission Date: 20140127
  Serious: Yes (Other)
  Sender: FDA-Public Use
  Company Number: US-BAYER-2013-000526

PATIENT
  Age: 13 Month
  Sex: Female
  Weight: 12.7 kg

DRUGS (2)
  1. ALKA-SELTZER ORIGINAL [Suspect]
     Dosage: 0.25 DF, ONCE
     Route: 048
     Dates: start: 20121230, end: 20121231
  2. CHILDREN^S TYLENOL [Concomitant]

REACTIONS (6)
  - Skin candida [None]
  - Dyspnoea [None]
  - Accidental exposure to product by child [None]
  - Diarrhoea [Recovered/Resolved]
  - Pyrexia [Not Recovered/Not Resolved]
  - Erythema [Not Recovered/Not Resolved]
